FAERS Safety Report 8707876 (Version 3)
Quarter: 2012Q4

REPORT INFORMATION
  Report Type: 
  Country: US (occurrence: US)
  Receive Date: 20120806
  Receipt Date: 20121015
  Transmission Date: 20130627
  Serious: Yes (Other)
  Sender: FDA-Public Use
  Company Number: US-PFIZER INC-2012187373

PATIENT
  Age: 59 Year
  Sex: Male
  Weight: 96.1 kg

DRUGS (4)
  1. XALKORI [Suspect]
     Indication: LUNG CARCINOMA CELL TYPE UNSPECIFIED STAGE IV
     Dosage: 250 mg, 2x/day
     Route: 048
     Dates: start: 20120509
  2. XALKORI [Suspect]
     Indication: LUNG NEOPLASM MALIGNANT
  3. SYNTHROID [Concomitant]
     Indication: THYROID CANCER
     Dosage: 200 ug, daily
  4. LASIX [Concomitant]
     Indication: OEDEMA
     Dosage: UNK

REACTIONS (9)
  - Hydropneumothorax [Not Recovered/Not Resolved]
  - Ascites [Unknown]
  - Pleural effusion [Unknown]
  - Hypoalbuminaemia [Unknown]
  - Oedema peripheral [Unknown]
  - Thrombocytosis [Unknown]
  - Blood potassium increased [Recovering/Resolving]
  - Blood calcium decreased [Unknown]
  - Protein total decreased [Unknown]
